FAERS Safety Report 21169182 (Version 2)
Quarter: 2022Q3

REPORT INFORMATION
  Report Type: Spontaneous
  Country: US (occurrence: None)
  Receive Date: 20220804
  Receipt Date: 20220916
  Transmission Date: 20221026
  Serious: No
  Sender: FDA-Public Use
  Company Number: 2022A257749

PATIENT
  Age: 722 Month
  Sex: Female
  Weight: 67.1 kg

DRUGS (2)
  1. BUDESONIDE\FORMOTEROL\GLYCOPYRRONIUM [Suspect]
     Active Substance: BUDESONIDE\FORMOTEROL\GLYCOPYRRONIUM
     Indication: Chronic obstructive pulmonary disease
     Dosage: 160/9/4.8 MCG, TWO INHALATIONS, TWO TIMES A DAY
     Route: 055
  2. MOLNUPIRAVIR [Concomitant]
     Active Substance: MOLNUPIRAVIR
     Dates: start: 20220711

REACTIONS (6)
  - Dyspnoea exertional [Recovering/Resolving]
  - COVID-19 [Recovering/Resolving]
  - Incorrect dose administered by device [Not Recovered/Not Resolved]
  - Drug dose omission by device [Not Recovered/Not Resolved]
  - Wrong technique in device usage process [Unknown]
  - Device delivery system issue [Unknown]

NARRATIVE: CASE EVENT DATE: 20220701
